FAERS Safety Report 6811341-2 (Version None)
Quarter: 2010Q2

REPORT INFORMATION
  Report Type: 
  Country: None (occurrence: None)
  Receive Date: 20100630
  Receipt Date: 20100224
  Transmission Date: 20101027
  Serious: No
  Sender: FDA-Public Use
  Company Number: US-AMGEN-KDL395991

PATIENT
  Age: 65 Year
  Sex: Male
  Weight: 115.3 kg

DRUGS (7)
  1. PROCRIT [Suspect]
     Indication: MYELODYSPLASTIC SYNDROME
     Dates: start: 20080101
  2. AVAPRO [Concomitant]
  3. METOPROLOL TARTRATE [Concomitant]
  4. UNSPECIFIED MEDICATION [Concomitant]
  5. GLUCOSAMINE [Concomitant]
  6. CHONDROITIN [Concomitant]
  7. FOLIC ACID [Concomitant]

REACTIONS (1)
  - UNDERDOSE [None]
